FAERS Safety Report 25974913 (Version 1)
Quarter: 2025Q4

REPORT INFORMATION
  Report Type: Spontaneous
  Country: JP (occurrence: JP)
  Receive Date: 20251029
  Receipt Date: 20251029
  Transmission Date: 20260118
  Serious: Yes (Life-Threatening, Other)
  Sender: PFIZER
  Company Number: JP-PFIZER INC-PV202500126741

PATIENT
  Age: 65 Year
  Sex: Male

DRUGS (10)
  1. METHYLPREDNISOLONE SODIUM SUCCINATE [Suspect]
     Active Substance: METHYLPREDNISOLONE SODIUM SUCCINATE
     Indication: Transplant rejection
     Dosage: 125 MG, 1X/DAY
  2. METHYLPREDNISOLONE SODIUM SUCCINATE [Suspect]
     Active Substance: METHYLPREDNISOLONE SODIUM SUCCINATE
     Indication: Immunosuppressant drug therapy
     Dosage: UNK, PULSE THERAPY
     Route: 042
  3. RITUXIMAB [Suspect]
     Active Substance: RITUXIMAB
     Dosage: 375 MG/M2
     Route: 042
  4. TACROLIMUS [Concomitant]
     Active Substance: TACROLIMUS
     Indication: Immunosuppressant drug therapy
     Dosage: 1-2 MG/DAY
  5. TACROLIMUS [Concomitant]
     Active Substance: TACROLIMUS
     Dosage: UNK, 1X/DAY (1-2 MG/DAY)
  6. TACROLIMUS [Concomitant]
     Active Substance: TACROLIMUS
     Dosage: CONTINUOUS INTRAVENOUS INFUSION
     Route: 042
  7. MYCOPHENOLATE MOFETIL [Concomitant]
     Active Substance: MYCOPHENOLATE MOFETIL
     Indication: Immunosuppressant drug therapy
     Dosage: 1000 MG, 1X/DAY
  8. MYCOPHENOLATE MOFETIL [Concomitant]
     Active Substance: MYCOPHENOLATE MOFETIL
     Dosage: 1000-1500 MG/DAY
  9. IMMUNE GLOBULIN NOS [Concomitant]
     Active Substance: IMMUNE GLOBULIN NOS
     Indication: Transplant rejection
     Dosage: HIGH-DOSE
     Route: 042
  10. IMMUNE GLOBULIN NOS [Concomitant]
     Active Substance: IMMUNE GLOBULIN NOS
     Indication: Immunosuppressant drug therapy

REACTIONS (2)
  - Immunosuppression [Unknown]
  - Off label use [Unknown]
